FAERS Safety Report 6994266-1 (Version None)
Quarter: 2010Q3

REPORT INFORMATION
  Report Type: 
  Country: None (occurrence: None)
  Receive Date: 20100917
  Receipt Date: 20070613
  Transmission Date: 20110219
  Serious: Yes (Hospitalization, Other)
  Sender: FDA-Public Use
  Company Number: US-ASTRAZENECA-2006UW05792

PATIENT
  Age: 16147 Day
  Sex: Male
  Weight: 86.2 kg

DRUGS (12)
  1. SEROQUEL [Suspect]
     Indication: SCHIZOPHRENIA
     Dosage: 100-900 MG
     Route: 048
     Dates: start: 20040623
  2. SEROQUEL [Suspect]
     Indication: DEPRESSION
     Dosage: 100-900 MG
     Route: 048
     Dates: start: 20040623
  3. SEROQUEL [Suspect]
     Indication: SLEEP DISORDER
     Dosage: 100-900 MG
     Route: 048
     Dates: start: 20040623
  4. SEROQUEL [Suspect]
     Route: 048
     Dates: start: 20040101
  5. SEROQUEL [Suspect]
     Route: 048
     Dates: start: 20040101
  6. SEROQUEL [Suspect]
     Route: 048
     Dates: start: 20040101
  7. ABILIFY [Concomitant]
  8. LIPITOR [Concomitant]
     Dosage: 10-40 MG
     Dates: start: 20050513
  9. LOPID [Concomitant]
     Dates: start: 20050718
  10. LOPRESSOR [Concomitant]
     Dosage: 25-50 MG TWO TIMES A DAY
     Dates: start: 20041028
  11. PRILOSEC [Concomitant]
     Dosage: 20-40 MG
     Dates: start: 20050513
  12. ACCUPRIL [Concomitant]
     Dates: start: 20050718

REACTIONS (7)
  - BLOOD CHOLESTEROL INCREASED [None]
  - DIABETES MELLITUS [None]
  - DIABETIC KETOACIDOSIS [None]
  - HYPERCHOLESTEROLAEMIA [None]
  - HYPERLIPIDAEMIA [None]
  - TYPE 1 DIABETES MELLITUS [None]
  - TYPE 2 DIABETES MELLITUS [None]
